FAERS Safety Report 8215126-4 (Version None)
Quarter: 2012Q1

REPORT INFORMATION
  Report Type: 
  Country: None (occurrence: None)
  Receive Date: 20120316
  Receipt Date: 20120313
  Transmission Date: 20120608
  Serious: Yes (Other)
  Sender: FDA-Public Use
  Company Number: US-PFIZER INC-2012066749

PATIENT
  Sex: Female
  Weight: 70.295 kg

DRUGS (4)
  1. ZETIA [Concomitant]
     Indication: BLOOD CHOLESTEROL INCREASED
     Dosage: 10 MG, DAILY
  2. XANAX XR [Suspect]
     Indication: ANXIETY
     Dosage: 2 MG, 1X/DAY
     Route: 048
     Dates: start: 20040101
  3. XANAX XR [Suspect]
     Indication: PANIC DISORDER
     Dosage: 1.5 MG, DAILY
  4. XANAX XR [Suspect]
     Indication: GENERALISED ANXIETY DISORDER
     Dosage: 1 MG, 1X/DAY
     Route: 048

REACTIONS (6)
  - FEELING ABNORMAL [None]
  - FATIGUE [None]
  - PANIC ATTACK [None]
  - NARCOLEPSY [None]
  - DRUG INTOLERANCE [None]
  - ACTIVITIES OF DAILY LIVING IMPAIRED [None]
